FAERS Safety Report 18860608 (Version 2)
Quarter: 2021Q1

REPORT INFORMATION
  Report Type: Spontaneous
  Country: US (occurrence: US)
  Receive Date: 20210208
  Receipt Date: 20210208
  Transmission Date: 20210420
  Serious: Yes (Hospitalization, Other)
  Sender: FDA-Public Use
  Company Number: US-PFIZER INC-2021101673

PATIENT
  Age: 59 Year
  Sex: Male
  Weight: 64.41 kg

DRUGS (4)
  1. LISINOPRIL. [Concomitant]
     Active Substance: LISINOPRIL
     Dosage: UNK
  2. AMLODIPINE BESILATE [Suspect]
     Active Substance: AMLODIPINE BESYLATE
     Indication: BLOOD PRESSURE MEASUREMENT
     Dosage: 10 MG, 1X/DAY (10MG ONCE EVERY DAY IN THE MORNING TABLET   )
     Dates: end: 20210123
  3. NORVASC [Suspect]
     Active Substance: AMLODIPINE BESYLATE
     Indication: BLOOD PRESSURE MEASUREMENT
     Dosage: 10 MG, 1X/DAY
  4. PANTOPRAZOLE [Concomitant]
     Active Substance: PANTOPRAZOLE
     Indication: ULCER
     Dosage: 40 MG, 1X/DAY

REACTIONS (2)
  - Hepatic enzyme increased [Recovering/Resolving]
  - Pancreatitis acute [Unknown]

NARRATIVE: CASE EVENT DATE: 202101
